FAERS Safety Report 9549892 (Version 2)
Quarter: 2013Q3

REPORT INFORMATION
  Report Type: Report from Study
  Country: US (occurrence: US)
  Receive Date: 20130924
  Receipt Date: 20130924
  Transmission Date: 20140515
  Serious: Yes (Hospitalization)
  Sender: FDA-Public Use
  Company Number: US-ACTELION-A-US2013-88213

PATIENT
  Age: 33 Year
  Sex: Male

DRUGS (3)
  1. TRACLEER [Suspect]
     Indication: COR PULMONALE CHRONIC
     Dosage: UNK
     Route: 048
  2. ADCIRCA [Concomitant]
  3. REMODULIN [Concomitant]

REACTIONS (6)
  - Anxiety [Unknown]
  - Headache [Unknown]
  - Pain in jaw [Unknown]
  - Dizziness [Unknown]
  - Loss of consciousness [Unknown]
  - Dyspnoea [Unknown]
